FAERS Safety Report 9226036 (Version 1)
Quarter: 2013Q1

REPORT INFORMATION
  Report Type: Spontaneous
  Country: US (occurrence: None)
  Receive Date: 20120921
  Receipt Date: 20120921
  Transmission Date: 20140127
  Serious: Yes (Life-Threatening, Hospitalization, Disabling)
  Sender: FDA-Public Use
  Company Number: WAES1108USA03552

PATIENT
  Age: 62 Year
  Sex: Male
  Weight: 86.64 kg

DRUGS (15)
  1. TAB VYTORIN UNK [Suspect]
     Indication: HYPERCHOLESTEROLAEMIA
     Dosage: 10-40 MG/DAILY/PO
     Route: 048
     Dates: start: 201104
  2. CIALIS [Concomitant]
  3. COREG [Suspect]
  4. NASONEX [Concomitant]
  5. NORVASC [Concomitant]
  6. PLAVIX [Concomitant]
  7. ZOLOFT [Concomitant]
  8. ALBUTEROL [Concomitant]
  9. ASPIRIN [Concomitant]
  10. HYDROCHLOROTHIAZIDE [Concomitant]
  11. LISINOPRIL [Concomitant]
  12. LORAZEPAM [Concomitant]
  13. METFORMIN [Concomitant]
  14. NITROGLYCERIN [Concomitant]
  15. POTASSIUM ( UNSPECIFIED) [Concomitant]

REACTIONS (1)
  - Amnesia [None]
